FAERS Safety Report 21412666 (Version 1)
Quarter: 2022Q4

REPORT INFORMATION
  Report Type: Spontaneous
  Country: US (occurrence: US)
  Receive Date: 20221005
  Receipt Date: 20221005
  Transmission Date: 20230113
  Serious: No
  Sender: FDA-Public Use
  Company Number: US-SA-SAC20221003000185

PATIENT

DRUGS (1)
  1. ALLEGRA [Suspect]
     Active Substance: FEXOFENADINE HYDROCHLORIDE
     Indication: Pruritus
     Dosage: UNK UNK, QD
     Route: 065

REACTIONS (4)
  - Panic attack [Unknown]
  - Hypoaesthesia [Unknown]
  - Paraesthesia [Unknown]
  - Staring [Unknown]

NARRATIVE: CASE EVENT DATE: 20220523
